FAERS Safety Report 14826214 (Version 1)
Quarter: 2018Q2

REPORT INFORMATION
  Report Type: Spontaneous
  Country: US (occurrence: US)
  Receive Date: 20180430
  Receipt Date: 20180430
  Transmission Date: 20180711
  Serious: No
  Sender: FDA-Public Use
  Company Number: US-BEH-2018089999

PATIENT
  Sex: Female

DRUGS (2)
  1. NORMAL SALINE [Concomitant]
     Active Substance: SODIUM CHLORIDE
     Indication: HEADACHE
     Route: 065
  2. PRIVIGEN [Suspect]
     Active Substance: HUMAN IMMUNOGLOBULIN G
     Indication: PRIMARY IMMUNODEFICIENCY SYNDROME
     Dosage: 30 G, QMT
     Route: 065
     Dates: start: 2013

REACTIONS (5)
  - Breast oedema [Recovered/Resolved]
  - Localised oedema [Recovered/Resolved]
  - Hypoaesthesia [Unknown]
  - Headache [Recovered/Resolved]
  - Paraesthesia [Unknown]
